FAERS Safety Report 13805944 (Version 1)
Quarter: 2017Q3

REPORT INFORMATION
  Report Type: Spontaneous
  Country: CZ (occurrence: CZ)
  Receive Date: 20170728
  Receipt Date: 20170728
  Transmission Date: 20171127
  Serious: Yes (Other)
  Sender: FDA-Public Use
  Company Number: CZ-SUN PHARMACEUTICAL INDUSTRIES LTD-2017RR-144654

PATIENT
  Age: 64 Year
  Sex: Female

DRUGS (2)
  1. GEMCITABINE [Suspect]
     Active Substance: GEMCITABINE\GEMCITABINE HYDROCHLORIDE
     Indication: GALLBLADDER ADENOCARCINOMA
     Dosage: 1000 MG/M2, ON THE FIRST AND ON THE 8TH DAY FOR 21 DAYS
     Route: 065
  2. CISPLATIN. [Suspect]
     Active Substance: CISPLATIN
     Indication: GALLBLADDER ADENOCARCINOMA
     Dosage: 25 MG/M2, ON THE FIRST AND ON THE 8TH DAY FOR 21 DAYS
     Route: 065

REACTIONS (2)
  - Disease progression [Unknown]
  - Drug effect incomplete [Unknown]
